FAERS Safety Report 9836260 (Version 1)
Quarter: 2014Q1

REPORT INFORMATION
  Report Type: Spontaneous
  Country: US (occurrence: US)
  Receive Date: 20140123
  Receipt Date: 20140123
  Transmission Date: 20141002
  Serious: No
  Sender: FDA-Public Use
  Company Number: US-009507513-1401USA008781

PATIENT
  Sex: Female

DRUGS (1)
  1. PROVENTIL [Suspect]
     Indication: ASTHMA
     Dosage: AS NEEDED
     Route: 055
     Dates: start: 1993

REACTIONS (4)
  - Drug ineffective [Recovered/Resolved]
  - Device malfunction [Unknown]
  - Product taste abnormal [Unknown]
  - Drug dose omission [Unknown]
